FAERS Safety Report 8786188 (Version 1)
Quarter: 2012Q4

REPORT INFORMATION
  Report Type: 
  Country: US (occurrence: US)
  Receive Date: 20120914
  Receipt Date: 20120914
  Transmission Date: 20130627
  Serious: No
  Sender: FDA-Public Use
  Company Number: US-ASTRAZENECA-2012SE61215

PATIENT
  Sex: Female

DRUGS (4)
  1. CRESTOR [Suspect]
     Dosage: DAILY
     Route: 048
  2. CRESTOR [Suspect]
     Dosage: THREE TIMES A DAY
     Route: 048
  3. CRESTOR [Suspect]
     Dosage: EVERY THIRD DAY
     Route: 048
  4. POTASSIUM [Concomitant]

REACTIONS (2)
  - Muscle spasms [Unknown]
  - Off label use [Unknown]
